FAERS Safety Report 6881340-3 (Version None)
Quarter: 2010Q2

REPORT INFORMATION
  Report Type: 
  Country: None (occurrence: None)
  Receive Date: 20100630
  Receipt Date: 20100630
  Transmission Date: 20101027
  Serious: No
  Sender: FDA-Public Use
  Company Number: 2009-01092

PATIENT
  Age: 49 Year
  Sex: Male
  Weight: 90.7194 kg

DRUGS (3)
  1. ZICAM COLD REMEDY NASAL GEL [Suspect]
     Dosage: Q4 HOURS X 10 DAYS
     Dates: start: 20090505, end: 20090515
  2. CLARITIN [Concomitant]
  3. ZYRTEC-D 12 HOUR [Concomitant]

REACTIONS (3)
  - ANOSMIA [None]
  - BURNING SENSATION [None]
  - PAIN [None]
